FAERS Safety Report 23278148 (Version 3)
Quarter: 2024Q1

REPORT INFORMATION
  Report Type: Spontaneous
  Country: US (occurrence: US)
  Receive Date: 20231208
  Receipt Date: 20240214
  Transmission Date: 20240409
  Serious: Yes (Other)
  Sender: FDA-Public Use
  Company Number: US-GILEAD-2023-0654214

PATIENT
  Age: 63 Year
  Sex: Male
  Weight: 85.261 kg

DRUGS (5)
  1. YESCARTA [Suspect]
     Active Substance: AXICABTAGENE CILOLEUCEL
     Indication: Diffuse large B-cell lymphoma
     Dosage: UNK
     Route: 042
     Dates: start: 20231107, end: 20231107
  2. CEFEPIME [Concomitant]
     Active Substance: CEFEPIME HYDROCHLORIDE
     Dosage: UNK
     Dates: start: 20231110, end: 20231112
  3. LEVOFLOXACIN [Concomitant]
     Active Substance: LEVOFLOXACIN
     Dosage: UNK
     Dates: start: 20231107, end: 20231109
  4. FLUCONAZOLE [Concomitant]
     Active Substance: FLUCONAZOLE
     Dosage: UNK
     Dates: start: 20231107, end: 20231115
  5. ACYCLOVIR [Concomitant]
     Active Substance: ACYCLOVIR
     Dosage: UNK
     Dates: start: 20231107, end: 20231116

REACTIONS (3)
  - Cytokine release syndrome [Unknown]
  - Pyrexia [Recovered/Resolved]
  - Painful respiration [Recovered/Resolved]

NARRATIVE: CASE EVENT DATE: 20231110
